FAERS Safety Report 23133583 (Version 1)
Quarter: 2023Q4

REPORT INFORMATION
  Report Type: Spontaneous
  Country: US (occurrence: None)
  Receive Date: 20231031
  Receipt Date: 20231031
  Transmission Date: 20240110
  Serious: No
  Sender: FDA-Public Use
  Company Number: None

PATIENT
  Age: 23 Year
  Sex: Male
  Weight: 65.25 kg

DRUGS (1)
  1. LUBRICATING EYE DROPS [Suspect]
     Active Substance: CARBOXYMETHYLCELLULOSE SODIUM
     Indication: Eye irritation

REACTIONS (2)
  - Eye irritation [None]
  - Vision blurred [None]

NARRATIVE: CASE EVENT DATE: 20231028
